FAERS Safety Report 11435121 (Version 1)
Quarter: 2015Q3

REPORT INFORMATION
  Report Type: Spontaneous
  Country: US (occurrence: US)
  Receive Date: 20150831
  Receipt Date: 20150831
  Transmission Date: 20151125
  Serious: No
  Sender: FDA-Public Use
  Company Number: US-PFIZER INC-2015275927

PATIENT
  Sex: Male

DRUGS (2)
  1. SUTENT [Suspect]
     Active Substance: SUNITINIB MALATE
     Indication: RENAL CANCER
     Dosage: 25 MG, CYCLIC (12.5 MG 2 CAPSULES DAILY X 2 WEEKS ON, 1 WEEK OFF)
     Dates: start: 20120919, end: 20150812
  2. SUTENT [Suspect]
     Active Substance: SUNITINIB MALATE
     Indication: MESOTHELIOMA

REACTIONS (3)
  - Mesothelioma [Unknown]
  - Disease progression [Unknown]
  - Renal cancer [Unknown]
